FAERS Safety Report 11774153 (Version 1)
Quarter: 2015Q4

REPORT INFORMATION
  Report Type: Spontaneous
  Country: HU (occurrence: HU)
  Receive Date: 20151124
  Receipt Date: 20151124
  Transmission Date: 20160304
  Serious: Yes (Other)
  Sender: FDA-Public Use
  Company Number: HU-PFIZER INC-2015390975

PATIENT
  Age: 74 Year
  Sex: Female

DRUGS (2)
  1. CARDURA XL [Suspect]
     Active Substance: DOXAZOSIN MESYLATE
     Indication: HYPERTENSION
  2. FRONTIN [Concomitant]
     Active Substance: ALPRAZOLAM
     Dosage: UNK, AS NEEDED

REACTIONS (3)
  - Arthralgia [Unknown]
  - Blood pressure fluctuation [Unknown]
  - Gastric cancer [Unknown]
